FAERS Safety Report 4353440-3 (Version None)
Quarter: 2004Q2

REPORT INFORMATION
  Report Type: 
  Country: None (occurrence: None)
  Receive Date: 20040505
  Receipt Date: 20040505
  Transmission Date: 20050107
  Serious: Yes (Hospitalization)
  Sender: FDA-Public Use
  Company Number: None

PATIENT
  Age: 74 Year
  Sex: Male
  Weight: 65.3 kg

DRUGS (33)
  1. WARFARIN SODIUM [Suspect]
     Indication: ATRIAL FIBRILLATION
     Dosage: 5 MG DAILY ORAL
     Route: 048
     Dates: end: 20031202
  2. WARFARIN SODIUM [Suspect]
     Indication: MYOCARDIAL INFARCTION
     Dosage: 5 MG DAILY ORAL
     Route: 048
     Dates: end: 20031202
  3. ASPIRIN [Suspect]
     Indication: ATRIAL FIBRILLATION
     Dosage: 325 M, DAILY ORAL
     Route: 048
     Dates: end: 22001202
  4. ASPIRIN [Suspect]
     Indication: MYOCARDIAL INFARCTION
     Dosage: 325 M, DAILY ORAL
     Route: 048
     Dates: end: 22001202
  5. CLOPIDOGREL BISULFATE [Suspect]
     Indication: ATRIAL FIBRILLATION
     Dosage: ORAL DAILY
     Dates: end: 20031202
  6. CLOPIDOGREL BISULFATE [Suspect]
     Indication: MYOCARDIAL INFARCTION
     Dosage: ORAL DAILY
     Dates: end: 20031202
  7. FLUNISOLIDE 250 MCG/MENTHOL [Concomitant]
  8. LOVASTATIN [Concomitant]
  9. MEPERIDINE HCL [Concomitant]
  10. DIGOXIN [Concomitant]
  11. LANSOPRAZOLE [Concomitant]
  12. MICONAZOLE NITRATE [Concomitant]
  13. HUMULIN R [Concomitant]
  14. GUAIFENESIN [Concomitant]
  15. ABSORBASE TOP OINT [Concomitant]
  16. SALMETEROL ORAL INH [Concomitant]
  17. IPRATROPIUM BRONIDE INH [Concomitant]
  18. IPRATROPIUM BROMIDE [Concomitant]
  19. METRONIDAZOLE [Concomitant]
  20. PROPOXPHENE N 100 MG/ACETAMINOPHEN [Concomitant]
  21. LISINOPRIL [Concomitant]
  22. FUROSEMIDE [Concomitant]
  23. MICONAZOLE NITRATE [Concomitant]
  24. GLIPIZIDE [Concomitant]
  25. RABEPRAZOLE SODIUM [Concomitant]
  26. FLUNISOLIDE/MENTHOL INH [Concomitant]
  27. SALMETEROL ORAL INH [Concomitant]
  28. IPRATROPIUM BROMIDE INH [Concomitant]
  29. ALBUTEROL 0.83% INH [Concomitant]
  30. PROPOXYPHENE N 100 MG/ACETAMINOPHEN [Concomitant]
  31. AMIKACIN SULFATE [Concomitant]
  32. VANCOMYCIN [Concomitant]
  33. PIPERACILLIN/TAZOBACTAM [Concomitant]

REACTIONS (1)
  - GASTROINTESTINAL HAEMORRHAGE [None]
